FAERS Safety Report 6741322-9 (Version None)
Quarter: 2010Q2

REPORT INFORMATION
  Report Type: 
  Country: None (occurrence: None)
  Receive Date: 20100526
  Receipt Date: 20100518
  Transmission Date: 20101027
  Serious: Yes (Other)
  Sender: FDA-Public Use
  Company Number: US-PFIZER INC-2010063220

PATIENT
  Sex: Male

DRUGS (1)
  1. FLAGYL [Suspect]
     Indication: HELICOBACTER INFECTION
     Dosage: UNK

REACTIONS (5)
  - COELIAC DISEASE [None]
  - DRUG INEFFECTIVE [None]
  - MIGRAINE [None]
  - MYOPIA [None]
  - SINUSITIS [None]
